FAERS Safety Report 16950334 (Version 3)
Quarter: 2020Q1

REPORT INFORMATION
  Report Type: Report from Study
  Country: IT (occurrence: IT)
  Receive Date: 20191023
  Receipt Date: 20200207
  Transmission Date: 20200409
  Serious: Yes (Hospitalization)
  Sender: FDA-Public Use
  Company Number: IT-ROCHE-2442019

PATIENT
  Age: 55 Year
  Sex: Female
  Weight: 54 kg

DRUGS (4)
  1. EPIRUBICIN [Suspect]
     Active Substance: EPIRUBICIN
     Indication: TRIPLE NEGATIVE BREAST CANCER
     Dosage: FOR A TOTAL OF 4 DOSES?DATE OF MOST RECENT DOSE OF EPIRUBICIN (140 MG) PRIOR TO AE ONSET: 26/SEP/201
     Route: 042
     Dates: start: 20190816
  2. ATEZOLIZUMAB. [Suspect]
     Active Substance: ATEZOLIZUMAB
     Indication: TRIPLE NEGATIVE BREAST CANCER
     Dosage: FOR 10 DOSES?DATE OF MOST RECENT DOSE OF ATEZOLIZUMAB (840 MG) PRIOR TO ANEMIA ONSET: 25/JUL/2019?DA
     Route: 042
     Dates: start: 20190508
  3. CYCLOPHOSPHAMIDE. [Suspect]
     Active Substance: CYCLOPHOSPHAMIDE
     Indication: TRIPLE NEGATIVE BREAST CANCER
     Dosage: FOR 4 DOSES?DATE OF MOST RECENT DOSE OF CYCLOPHOSPHAMIDE (960 MG) PRIOR TO AE ONSET
     Route: 042
     Dates: start: 20190816
  4. PACLITAXEL. [Suspect]
     Active Substance: PACLITAXEL
     Indication: TRIPLE NEGATIVE BREAST CANCER
     Dosage: FOR 12 WEEKS?DATE OF MOST RECENT DOSE OF PACLITAXEL (125 MG) PRIOR TO ANEMIA ONSET: 25/JUL/2019?DATE
     Route: 042
     Dates: start: 20190508

REACTIONS (2)
  - Anaemia [Not Recovered/Not Resolved]
  - Neutrophil count decreased [Not Recovered/Not Resolved]

NARRATIVE: CASE EVENT DATE: 20190801
